FAERS Safety Report 20677537 (Version 1)
Quarter: 2022Q2

REPORT INFORMATION
  Report Type: Report from Study
  Country: CL (occurrence: CL)
  Receive Date: 20220406
  Receipt Date: 20220406
  Transmission Date: 20220721
  Serious: Yes (Other)
  Sender: FDA-Public Use
  Company Number: CL-NOVARTISPH-NVSC2022CL076620

PATIENT
  Age: 10 Year
  Sex: Female
  Weight: 44 kg

DRUGS (1)
  1. OMNITROPE [Suspect]
     Active Substance: SOMATROPIN
     Indication: Growth retardation
     Dosage: UNK, QD (1.7 MG/ 10 MG/ 1.5 ML)
     Route: 058
     Dates: start: 20210511, end: 20220115

REACTIONS (1)
  - Blood growth hormone increased [Unknown]

NARRATIVE: CASE EVENT DATE: 20220115
